FAERS Safety Report 17336225 (Version 1)
Quarter: 2020Q1

REPORT INFORMATION
  Report Type: Report from Study
  Country: CA (occurrence: CA)
  Receive Date: 20200129
  Receipt Date: 20200129
  Transmission Date: 20200409
  Serious: Yes (Other)
  Sender: FDA-Public Use
  Company Number: CA-PFIZER INC-2020034857

PATIENT
  Sex: Male

DRUGS (4)
  1. METHOTREXATE SODIUM. [Suspect]
     Active Substance: METHOTREXATE SODIUM
  2. ARAVA [Suspect]
     Active Substance: LEFLUNOMIDE
     Dosage: 20 MG, 1X/DAY
  3. MELOXICAM. [Suspect]
     Active Substance: MELOXICAM
  4. HUMIRA [Suspect]
     Active Substance: ADALIMUMAB
     Indication: RHEUMATOID ARTHRITIS
     Route: 058

REACTIONS (7)
  - Arthralgia [Unknown]
  - Atrial fibrillation [Unknown]
  - Pain in extremity [Unknown]
  - Gait inability [Unknown]
  - Therapeutic product effect decreased [Unknown]
  - Mobility decreased [Unknown]
  - Pain [Unknown]
